FAERS Safety Report 22039755 (Version 1)
Quarter: 2023Q1

REPORT INFORMATION
  Report Type: Spontaneous
  Country: US (occurrence: None)
  Receive Date: 20230224
  Receipt Date: 20230224
  Transmission Date: 20230417
  Serious: No
  Sender: FDA-Public Use
  Company Number: None

PATIENT
  Sex: 0

DRUGS (2)
  1. SARNA (PRAMOXINE HYDROCHLORIDE) [Suspect]
     Active Substance: PRAMOXINE HYDROCHLORIDE
     Indication: Rash
     Dosage: FREQUENCY : 4 TIMES A DAY;?
     Route: 061
     Dates: start: 20230208, end: 20230217
  2. SARNA (PRAMOXINE HYDROCHLORIDE) [Suspect]
     Active Substance: PRAMOXINE HYDROCHLORIDE
     Indication: Pruritus

REACTIONS (3)
  - Application site vesicles [None]
  - Application site erythema [None]
  - Application site pruritus [None]
